FAERS Safety Report 21501110 (Version 1)
Quarter: 2022Q4

REPORT INFORMATION
  Report Type: Spontaneous
  Country: US (occurrence: US)
  Receive Date: 20221025
  Receipt Date: 20221025
  Transmission Date: 20230113
  Serious: Yes (Hospitalization, Other)
  Sender: FDA-Public Use
  Company Number: US-SA-2022SA427023

PATIENT
  Age: 2 Day
  Sex: Male

DRUGS (2)
  1. ONDANSETRON [Suspect]
     Active Substance: ONDANSETRON
     Indication: Product used for unknown indication
     Dosage: 2 MG
     Route: 030
  2. LIDOCAINE [Suspect]
     Active Substance: LIDOCAINE
     Indication: Circumcision
     Dosage: UNK

REACTIONS (4)
  - Penile oedema [Recovering/Resolving]
  - Injection site oedema [Recovering/Resolving]
  - Wrong product administered [Recovering/Resolving]
  - Bradycardia [Recovering/Resolving]
